FAERS Safety Report 4498754-1 (Version None)
Quarter: 2004Q4

REPORT INFORMATION
  Report Type: 
  Country: None (occurrence: None)
  Receive Date: 20041108
  Receipt Date: 20041022
  Transmission Date: 20050328
  Serious: Yes (Hospitalization, Disabling)
  Sender: FDA-Public Use
  Company Number: 002#4#2004-00036

PATIENT
  Age: 59 Year
  Sex: Male
  Weight: 90.2658 kg

DRUGS (2)
  1. PPA/CPM-75/8MG(OTC) (PHENYLPROPANOLAMINE HCI, CHLORPHENIRAMINE MALEATE [Suspect]
     Indication: NASAL CONGESTION
     Dosage: 2 IN 1 D, ORAL
     Route: 048
     Dates: start: 19980307, end: 19980318
  2. INSULIN [Concomitant]

REACTIONS (7)
  - CEREBRAL THROMBOSIS [None]
  - DIABETES MELLITUS [None]
  - DIZZINESS [None]
  - HEMIPARESIS [None]
  - HEMIPLEGIA [None]
  - HYPERTENSION [None]
  - ISCHAEMIC STROKE [None]
